FAERS Safety Report 4626635-9 (Version None)
Quarter: 2005Q1

REPORT INFORMATION
  Report Type: 
  Country: None (occurrence: None)
  Receive Date: 20050330
  Receipt Date: 20050318
  Transmission Date: 20050727
  Serious: Yes (Other)
  Sender: FDA-Public Use
  Company Number: 200511144BCC

PATIENT
  Sex: Female
  Weight: 81.6475 kg

DRUGS (4)
  1. ALKA-SELTZER EFFERVESCENT COLD [Suspect]
     Indication: NASOPHARYNGITIS
     Dosage: ORAL
     Route: 048
  2. CHOLESTEROL MEDICATION [Concomitant]
  3. MULTI-VITAMINS [Concomitant]
  4. BLOOD PRESSURE MEDICATION [Concomitant]

REACTIONS (1)
  - GASTROINTESTINAL HAEMORRHAGE [None]
